FAERS Safety Report 21842406 (Version 1)
Quarter: 2023Q1

REPORT INFORMATION
  Report Type: Spontaneous
  Country: FR (occurrence: FR)
  Receive Date: 20230110
  Receipt Date: 20230110
  Transmission Date: 20230417
  Serious: Yes (Other)
  Sender: FDA-Public Use
  Company Number: None

PATIENT
  Age: 53 Year
  Sex: Female

DRUGS (1)
  1. LETROZOLE [Suspect]
     Active Substance: LETROZOLE
     Indication: Breast cancer
     Dosage: UNK
     Route: 048
     Dates: start: 202206, end: 20221108

REACTIONS (7)
  - Vulvovaginal injury [Recovering/Resolving]
  - Sciatica [Recovering/Resolving]
  - Nail injury [Recovering/Resolving]
  - Genital discomfort [Recovering/Resolving]
  - Dry skin [Recovering/Resolving]
  - Vulvovaginal dryness [Recovering/Resolving]
  - Arthralgia [Recovering/Resolving]

NARRATIVE: CASE EVENT DATE: 20220908
